FAERS Safety Report 11714824 (Version 1)
Quarter: 2015Q4

REPORT INFORMATION
  Report Type: Spontaneous
  Country: DE (occurrence: DE)
  Receive Date: 20151109
  Receipt Date: 20151109
  Transmission Date: 20160304
  Serious: Yes (Other)
  Sender: FDA-Public Use
  Company Number: CHPA2015DE000597

PATIENT
  Age: 29 Year
  Sex: Female

DRUGS (4)
  1. OTRIVEN [Suspect]
     Active Substance: XYLOMETAZOLINE HYDROCHLORIDE
     Indication: HYPERSENSITIVITY
     Dosage: UNK, DAILY DOSE OF ?1-2 SPRAY PUFFS PER NOSTRIL APPROX EVERY 2 HOURS
     Route: 045
     Dates: start: 2010
  2. OTRIVEN [Suspect]
     Active Substance: XYLOMETAZOLINE HYDROCHLORIDE
     Indication: NASAL DECONGESTION THERAPY
     Dosage: UNK, DAILY DOSE OF ?1-2 SPRAY PUFFS PER NOSTRIL APPROX EVERY 2 HOURS
     Route: 045
     Dates: start: 2010
  3. OTRIVEN [Suspect]
     Active Substance: XYLOMETAZOLINE HYDROCHLORIDE
     Indication: HYPERSENSITIVITY
  4. OTRIVEN [Suspect]
     Active Substance: XYLOMETAZOLINE HYDROCHLORIDE
     Indication: NASAL CONGESTION

REACTIONS (4)
  - Maternal exposure during pregnancy [Unknown]
  - Incorrect drug administration duration [Unknown]
  - Drug dependence [Unknown]
  - Incorrect dose administered [Unknown]
